FAERS Safety Report 5006696-8 (Version None)
Quarter: 2006Q2

REPORT INFORMATION
  Report Type: 
  Country: None (occurrence: None)
  Receive Date: 20060519
  Receipt Date: 20060510
  Transmission Date: 20061013
  Serious: Yes (Hospitalization)
  Sender: FDA-Public Use
  Company Number: US-ROCHE-447727

PATIENT
  Sex: Female

DRUGS (2)
  1. ROCEPHIN [Suspect]
     Indication: DRUG USE FOR UNKNOWN INDICATION
     Dosage: PATIENT RECEIVED TWO INJECTIONS.
     Route: 030
     Dates: start: 20040503, end: 20040503
  2. SULFAMETHOXAZOLE + TRIMETHOPRIM [Suspect]
     Indication: DRUG USE FOR UNKNOWN INDICATION
     Route: 065
     Dates: start: 20040420, end: 20040503

REACTIONS (1)
  - TOXIC EPIDERMAL NECROLYSIS [None]
